FAERS Safety Report 10592391 (Version 2)
Quarter: 2015Q1

REPORT INFORMATION
  Report Type: Spontaneous
  Country: JP (occurrence: None)
  Receive Date: 20141117
  Receipt Date: 20150204
  Transmission Date: 20150720
  Serious: Yes (Life-Threatening, Hospitalization)
  Sender: FDA-Public Use
  Company Number: AXC-2014-000686

PATIENT
  Age: 84 Year
  Sex: Male
  Weight: 46 kg

DRUGS (14)
  1. SPIRIVA (TIOTROPIUM BROMIDE) [Concomitant]
  2. ARTIST (CARVEDILOL) [Concomitant]
  3. URSODEOXYCHOLIC ACID [Suspect]
     Active Substance: URSODIOL
     Indication: HEPATIC FUNCTION ABNORMAL
     Route: 048
     Dates: start: 20141015, end: 20141019
  4. OLMETEC (OLMESARTAN MEDOXOMIL) [Concomitant]
     Active Substance: OLMESARTAN MEDOXOMIL
  5. CALONAL (PARACETAMOL) [Concomitant]
  6. DENOTAS [Concomitant]
     Active Substance: CALCIUM CARBONATE\CHOLECALCIFEROL\MAGNESIUM CARBONATE
  7. LYRICA [Concomitant]
     Active Substance: PREGABALIN
  8. MIYA BM (CLOSTRIDIUM BUTYRICUM) [Concomitant]
  9. TOPOTECIN [Suspect]
     Active Substance: IRINOTECAN HYDROCHLORIDE
     Indication: PRODUCT USED FOR UNKNOWN INDICATION
     Route: 051
     Dates: start: 20140917, end: 20140917
  10. TAKEPRON (LANSOPRAZOLE) [Concomitant]
     Active Substance: LANSOPRAZOLE
  11. CARBOCISTEINE [Concomitant]
     Active Substance: CARBOCYSTEINE
  12. ARGAMATE (CALCIUM POLYSTYRENE SULFONATE) [Concomitant]
  13. AMBROXOL HYDROCHLORIDE [Concomitant]
     Active Substance: AMBROXOL HYDROCHLORIDE
  14. MAGMITT (MAGNESIUM OXIDE) [Concomitant]
     Active Substance: MAGNESIUM OXIDE

REACTIONS (4)
  - Interstitial lung disease [None]
  - Renal cyst [None]
  - Dyspnoea [None]
  - Prostatomegaly [None]

NARRATIVE: CASE EVENT DATE: 20141018
